FAERS Safety Report 10341888 (Version 3)
Quarter: 2014Q4

REPORT INFORMATION
  Report Type: Spontaneous
  Country: US (occurrence: US)
  Receive Date: 20140725
  Receipt Date: 20141017
  Transmission Date: 20150528
  Serious: Yes (Death, Other)
  Sender: FDA-Public Use
  Company Number: US-ASTELLAS-2014US008820

PATIENT
  Sex: Male

DRUGS (1)
  1. XTANDI [Suspect]
     Active Substance: ENZALUTAMIDE
     Indication: PROSTATE CANCER
     Route: 048

REACTIONS (4)
  - Ascites [Unknown]
  - Metastases to liver [Fatal]
  - Malignant neoplasm progression [Fatal]
  - Cardiac arrest [Fatal]
